FAERS Safety Report 7372300-7 (Version None)
Quarter: 2011Q1

REPORT INFORMATION
  Report Type: 
  Country: None (occurrence: None)
  Receive Date: 20110324
  Receipt Date: 20110316
  Transmission Date: 20110831
  Serious: Yes (Death)
  Sender: FDA-Public Use
  Company Number: B0591868A

PATIENT
  Sex: Male
  Weight: 75 kg

DRUGS (3)
  1. MELPHALAN [Suspect]
     Indication: MULTIPLE MYELOMA
     Dosage: 14MG PER DAY
     Route: 048
     Dates: start: 20071221, end: 20080125
  2. LENALIDOMIDE [Suspect]
     Indication: MULTIPLE MYELOMA
     Dosage: 10MG PER DAY
     Route: 048
     Dates: start: 20071221, end: 20080203
  3. PREDNISONE [Suspect]
     Indication: MULTIPLE MYELOMA
     Dosage: 150MG PER DAY
     Route: 048
     Dates: start: 20071221, end: 20080125

REACTIONS (6)
  - SEPTIC SHOCK [None]
  - BLOOD CREATININE INCREASED [None]
  - HYPOTENSION [None]
  - ANURIA [None]
  - FATIGUE [None]
  - DYSPNOEA [None]
